FAERS Safety Report 4728269-4 (Version None)
Quarter: 2005Q3

REPORT INFORMATION
  Report Type: 
  Country: None (occurrence: None)
  Receive Date: 20050727
  Receipt Date: 20050715
  Transmission Date: 20060218
  Serious: Yes (Other)
  Sender: FDA-Public Use
  Company Number: 2005-07-1209

PATIENT
  Sex: Female

DRUGS (2)
  1. NASONEX [Suspect]
     Dosage: NASAL SPRAY
  2. FORADIL [Suspect]

REACTIONS (3)
  - CATARACT [None]
  - EMPHYSEMA [None]
  - VISION BLURRED [None]
